FAERS Safety Report 5885827-1 (Version None)
Quarter: 2008Q3

REPORT INFORMATION
  Report Type: 
  Country: None (occurrence: None)
  Receive Date: 20080917
  Receipt Date: 20080915
  Transmission Date: 20090109
  Serious: Yes (Hospitalization)
  Sender: FDA-Public Use
  Company Number: US-BRISTOL-MYERS SQUIBB COMPANY-14335558

PATIENT
  Age: 80 Year
  Sex: Female

DRUGS (1)
  1. MEGESTROL ACETATE [Suspect]
     Indication: INCREASED APPETITE

REACTIONS (2)
  - ADRENAL INSUFFICIENCY [None]
  - RESPIRATORY ACIDOSIS [None]
